FAERS Safety Report 9699694 (Version 2)
Quarter: 2013Q4

REPORT INFORMATION
  Report Type: Spontaneous
  Country: US (occurrence: US)
  Receive Date: 20131120
  Receipt Date: 20131125
  Transmission Date: 20140711
  Serious: No
  Sender: FDA-Public Use
  Company Number: US-TEVA-372086USA

PATIENT
  Age: 24 Year
  Sex: Female
  Weight: 60.84 kg

DRUGS (6)
  1. PARAGARD 380A [Suspect]
     Indication: CONTRACEPTION
     Route: 015
     Dates: start: 20120328, end: 20120927
  2. COUMADIN [Concomitant]
     Indication: CEREBROVASCULAR ACCIDENT
  3. COUMADIN [Concomitant]
     Indication: THROMBOSIS PROPHYLAXIS
  4. SIMVASTATIN [Concomitant]
     Indication: HYPERCHOLESTEROLAEMIA
  5. HYDROCHLOROTHIAZIDE [Concomitant]
  6. HYDROXYCHLOROQUINE [Concomitant]

REACTIONS (1)
  - Device expulsion [Recovered/Resolved]
